FAERS Safety Report 4368198-1 (Version None)
Quarter: 2004Q2

REPORT INFORMATION
  Report Type: 
  Country: None (occurrence: None)
  Receive Date: 20040527
  Receipt Date: 20040518
  Transmission Date: 20050107
  Serious: Yes (Death)
  Sender: FDA-Public Use
  Company Number: 2004-BP-03777RA

PATIENT
  Age: 78 Year
  Sex: Male

DRUGS (4)
  1. TIOTROPIUM INHALATION POWDER (KAI) [Suspect]
     Indication: CHRONIC OBSTRUCTIVE AIRWAYS DISEASE
     Dosage: 18 MCG, 18 MCG/D)
  2. DILTIAZEM NORTHIA (TA) [Concomitant]
  3. ASPIRINETA (TA) [Concomitant]
  4. FLECAINIDE (FLECAINIDE) (TA) [Concomitant]

REACTIONS (1)
  - ACUTE MYOCARDIAL INFARCTION [None]
